FAERS Safety Report 9039510 (Version 1)
Quarter: 2013Q1

REPORT INFORMATION
  Report Type: Spontaneous
  Country: US (occurrence: None)
  Receive Date: 20130123
  Receipt Date: 20130123
  Transmission Date: 20140127
  Serious: Yes (Other)
  Sender: FDA-Public Use
  Company Number: None

PATIENT
  Age: 54 Year
  Sex: Male

DRUGS (1)
  1. RIBASPHERE [Suspect]
     Indication: HEPATITIS C
     Dosage: 200 MG  3 TABS AM AND 2 PM  ORAL
     Route: 048
     Dates: start: 20121205, end: 20121229

REACTIONS (2)
  - Dyspnoea [None]
  - Dyspnoea exertional [None]
